FAERS Safety Report 8973419 (Version 1)
Quarter: 2012Q4

REPORT INFORMATION
  Report Type: Report from Study
  Country: NL (occurrence: NL)
  Receive Date: 20121218
  Receipt Date: 20121218
  Transmission Date: 20130627
  Serious: Yes (Hospitalization)
  Sender: FDA-Public Use
  Company Number: NL-B.I. PHARMACEUTICALS,INC./RIDGEFIELD-2012-NL-00552NL

PATIENT
  Age: 75 Year
  Sex: Female
  Weight: 65 kg

DRUGS (7)
  1. PERSANTIN [Suspect]
     Indication: AMAUROSIS FUGAX
     Dosage: 400 mg
     Route: 048
     Dates: start: 2007, end: 20110610
  2. RITUXIMAB [Suspect]
     Indication: DIFFUSE LARGE B-CELL LYMPHOMA
     Dosage: 640 mg
     Route: 042
     Dates: start: 20110603
  3. PREDNISONE [Suspect]
     Dosage: 100 mg
     Route: 048
     Dates: start: 20110603
  4. CYCLOPHOSPHAMIDE [Suspect]
     Indication: DIFFUSE LARGE B-CELL LYMPHOMA
     Dosage: 1275 mg
     Route: 042
     Dates: start: 20110603
  5. DOXORUBICIN [Suspect]
     Indication: DIFFUSE LARGE B-CELL LYMPHOMA
     Dosage: 85 mg
     Route: 042
     Dates: start: 20110603
  6. G-CSF [Suspect]
     Indication: DIFFUSE LARGE B-CELL LYMPHOMA
     Dosage: 6 mg
     Route: 058
     Dates: start: 20110604
  7. ASCAL [Suspect]
     Indication: AMAUROSIS FUGAX
     Dosage: 100 mg
     Route: 048
     Dates: start: 2007, end: 20110610

REACTIONS (2)
  - Subarachnoid haemorrhage [Recovered/Resolved]
  - Pyrexia [Recovered/Resolved]
